FAERS Safety Report 7959417-0 (Version None)
Quarter: 2011Q4

REPORT INFORMATION
  Report Type: 
  Country: None (occurrence: None)
  Receive Date: 20111206
  Receipt Date: 20111130
  Transmission Date: 20120403
  Serious: Yes (Life-Threatening, Hospitalization)
  Sender: FDA-Public Use
  Company Number: FR-PFIZER INC-K201100162

PATIENT
  Age: 78 Year
  Sex: Male

DRUGS (13)
  1. NICARDIPINE HCL [Concomitant]
     Dosage: UNK
  2. PAROXETINE HCL [Concomitant]
     Dosage: UNK
  3. LASIX [Suspect]
     Dosage: UNK
     Route: 048
     Dates: end: 20110122
  4. METFORMIN [Concomitant]
     Dosage: UNK
  5. OMEPRAZOLE [Concomitant]
     Dosage: UNK
  6. RAMIPRIL [Suspect]
     Dosage: UNK
     Route: 048
     Dates: end: 20110122
  7. CORDARONE [Concomitant]
     Dosage: UNK
  8. ASPIRIN [Concomitant]
     Dosage: UNK
  9. LYRICA [Concomitant]
     Dosage: UNK
  10. TAMSULOSIN HCL [Concomitant]
     Dosage: UNK
  11. XANAX [Concomitant]
     Dosage: UNK
  12. ACETAMINOPHEN [Concomitant]
     Dosage: UNK
  13. ATORVASTATIN CALCIUM [Concomitant]
     Dosage: UNK

REACTIONS (4)
  - RENAL FAILURE ACUTE [None]
  - DEHYDRATION [None]
  - LACTIC ACIDOSIS [None]
  - DIARRHOEA [None]
